FAERS Safety Report 4852224-7 (Version None)
Quarter: 2005Q4

REPORT INFORMATION
  Report Type: 
  Country: None (occurrence: None)
  Receive Date: 20051213
  Receipt Date: 20051206
  Transmission Date: 20060501
  Serious: Yes (Other)
  Sender: FDA-Public Use
  Company Number: US-GLAXOSMITHKLINE-A0584882A

PATIENT
  Age: 67 Year
  Sex: Female
  Weight: 66.4 kg

DRUGS (8)
  1. IODINE I 131 TOSITUMOMAB [Suspect]
     Indication: NON-HODGKIN'S LYMPHOMA
     Route: 042
     Dates: start: 19990305, end: 19990305
  2. TOSITUMOMAB [Suspect]
     Indication: NON-HODGKIN'S LYMPHOMA
     Route: 042
     Dates: start: 19990305, end: 19990305
  3. IODINE I 131 TOSITUMOMAB [Suspect]
     Route: 042
     Dates: start: 19990316, end: 19990316
  4. TOSITUMOMAB [Suspect]
     Route: 042
     Dates: start: 19990316, end: 19990316
  5. FLUDARABINE [Suspect]
  6. ARANESP [Concomitant]
  7. IRON SUPPLEMENT [Concomitant]
  8. GLUCOSAMINE CHONDROITIN [Concomitant]

REACTIONS (3)
  - FATIGUE [None]
  - INCREASED TENDENCY TO BRUISE [None]
  - MYELODYSPLASTIC SYNDROME [None]
